FAERS Safety Report 5888483-1 (Version None)
Quarter: 2008Q3

REPORT INFORMATION
  Report Type: 
  Country: None (occurrence: None)
  Receive Date: 20080918
  Receipt Date: 20080910
  Transmission Date: 20090109
  Serious: Yes (Other)
  Sender: FDA-Public Use
  Company Number: FR-PFIZER INC-2008076917

PATIENT
  Age: 53 Year
  Sex: Female

DRUGS (1)
  1. TAHOR [Suspect]

REACTIONS (4)
  - BLOOD CREATINE PHOSPHOKINASE INCREASED [None]
  - PAIN [None]
  - PARAESTHESIA [None]
  - RHABDOMYOLYSIS [None]
